FAERS Safety Report 18924617 (Version 1)
Quarter: 2021Q1

REPORT INFORMATION
  Report Type: Spontaneous
  Country: US (occurrence: US)
  Receive Date: 20210223
  Receipt Date: 20210223
  Transmission Date: 20210420
  Serious: No
  Sender: FDA-Public Use
  Company Number: US-BIOGEN-2020BI00936290

PATIENT
  Age: 65 Year
  Sex: Female

DRUGS (1)
  1. TYSABRI [Suspect]
     Active Substance: NATALIZUMAB
     Indication: MULTIPLE SCLEROSIS
     Route: 065
     Dates: start: 20191118

REACTIONS (6)
  - Urinary tract infection [Unknown]
  - Multiple sclerosis relapse [Unknown]
  - Vitamin B12 increased [Unknown]
  - Stress [Unknown]
  - Stubbornness [Unknown]
  - Hypertension [Unknown]

NARRATIVE: CASE EVENT DATE: 20200922
